FAERS Safety Report 7731065-7 (Version None)
Quarter: 2011Q3

REPORT INFORMATION
  Report Type: 
  Country: None (occurrence: None)
  Receive Date: 20110906
  Receipt Date: 20110906
  Transmission Date: 20111222
  Serious: Yes (Hospitalization, Disabling)
  Sender: FDA-Public Use
  Company Number: None

PATIENT
  Age: 80 Year
  Sex: Male

DRUGS (2)
  1. DABIGATRAN 150MG PO BID [Suspect]
     Dosage: 150MG
     Route: 048
  2. ASPIRIN [Concomitant]
     Dosage: 81MG
     Route: 048

REACTIONS (2)
  - RECTAL HAEMORRHAGE [None]
  - HAEMATURIA [None]
